FAERS Safety Report 7474690-3 (Version None)
Quarter: 2011Q2

REPORT INFORMATION
  Report Type: 
  Country: None (occurrence: None)
  Receive Date: 20110505
  Receipt Date: 20110421
  Transmission Date: 20111010
  Serious: Yes (Hospitalization)
  Sender: FDA-Public Use
  Company Number: 027683

PATIENT
  Sex: Female
  Weight: 70 kg

DRUGS (13)
  1. VALORON /00205402/ [Concomitant]
  2. PREDNISOLONE [Concomitant]
  3. METHOTREXATE [Concomitant]
  4. CIMZIA [Suspect]
     Indication: RHEUMATOID ARTHRITIS
     Dosage: SEE IMAGE
     Route: 058
     Dates: start: 20090716
  5. CIMZIA [Suspect]
     Indication: RHEUMATOID ARTHRITIS
     Dosage: SEE IMAGE
     Route: 058
     Dates: start: 20090604, end: 20090716
  6. CIMZIA [Suspect]
     Indication: RHEUMATOID ARTHRITIS
     Dosage: SEE IMAGE
     Route: 058
     Dates: start: 20091222, end: 20100128
  7. CIMZIA [Suspect]
     Indication: RHEUMATOID ARTHRITIS
     Dosage: SEE IMAGE
     Route: 058
     Dates: start: 20090910, end: 20091019
  8. IBUPROFEN [Concomitant]
  9. FOLIC ACID [Concomitant]
  10. CALCIGEN D [Concomitant]
  11. PLAVIX [Concomitant]
  12. SULFASALAZINE [Concomitant]
  13. ASPIRIN [Concomitant]

REACTIONS (3)
  - CONCUSSION [None]
  - FALL [None]
  - LACERATION [None]
